FAERS Safety Report 25008201 (Version 2)
Quarter: 2025Q3

REPORT INFORMATION
  Report Type: Spontaneous
  Country: EU (occurrence: EU)
  Receive Date: 20250225
  Receipt Date: 20250718
  Transmission Date: 20251020
  Serious: Yes (Death, Hospitalization, Other)
  Sender: TEVA
  Company Number: None

PATIENT
  Age: 54 Year
  Sex: Male
  Weight: 101 kg

DRUGS (5)
  1. AMOXICILLIN\CLAVULANIC ACID [Suspect]
     Active Substance: AMOXICILLIN\CLAVULANIC ACID
     Indication: Sinusitis
     Route: 042
     Dates: start: 20250108, end: 20250108
  2. AMOXICILLIN\CLAVULANIC ACID [Suspect]
     Active Substance: AMOXICILLIN\CLAVULANIC ACID
     Indication: Sinusitis
     Route: 065
  3. AMOXICILLIN\CLAVULANIC ACID [Suspect]
     Active Substance: AMOXICILLIN\CLAVULANIC ACID
     Indication: Sinusitis
     Route: 042
  4. SODIUM CHLORIDE [Suspect]
     Active Substance: SODIUM CHLORIDE
     Indication: Product used for unknown indication
     Route: 042
     Dates: start: 20250108, end: 20250108
  5. SODIUM CHLORIDE [Suspect]
     Active Substance: SODIUM CHLORIDE
     Indication: Product used for unknown indication
     Route: 042

REACTIONS (8)
  - Ventricular fibrillation [Unknown]
  - Cardiac arrest [Fatal]
  - Anaphylactic reaction [Fatal]
  - Unresponsive to stimuli [Fatal]
  - Loss of consciousness [Unknown]
  - Heart rate decreased [Unknown]
  - Urinary incontinence [Fatal]
  - Hyperkalaemia [Unknown]

NARRATIVE: CASE EVENT DATE: 20250108
